FAERS Safety Report 9973673 (Version 2)
Quarter: 2014Q1

REPORT INFORMATION
  Report Type: Spontaneous
  Country: AU (occurrence: AU)
  Receive Date: 20140306
  Receipt Date: 20140306
  Transmission Date: 20141002
  Serious: Yes (Other)
  Sender: FDA-Public Use
  Company Number: AU-ASTRAZENECA-2013SE68587

PATIENT
  Sex: Female
  Weight: 57 kg

DRUGS (3)
  1. SEROQUEL [Suspect]
     Indication: BIPOLAR DISORDER
     Dosage: 50-300 MG, UNKNOWN FREQUENCY
     Route: 048
     Dates: start: 2003, end: 2013
  2. SEROQUEL [Suspect]
     Indication: BIPOLAR DISORDER
     Route: 048
  3. LITHIUM [Concomitant]

REACTIONS (1)
  - Spasmodic dysphonia [Recovered/Resolved]
